FAERS Safety Report 6493728-3 (Version None)
Quarter: 2009Q4

REPORT INFORMATION
  Report Type: 
  Country: None (occurrence: None)
  Receive Date: 20091209
  Receipt Date: 20091120
  Transmission Date: 20100525
  Serious: Yes (Death, Congenital Anomaly)
  Sender: FDA-Public Use
  Company Number: 390006N09TWN

PATIENT

DRUGS (2)
  1. CETROTIDE [Suspect]
     Indication: INFERTILITY
     Dosage: 0.25 MG, 1 IN 1 DAYS, OTHER
     Dates: start: 20090411, end: 20090415
  2. GONAL-F [Suspect]
     Indication: INFERTILITY
     Dosage: 300 IU, 1 IN 1 DAYS, OTHER
     Dates: start: 20090407, end: 20090415

REACTIONS (4)
  - ABORTION INDUCED [None]
  - CONGENITAL HEART VALVE DISORDER [None]
  - MATERNAL DRUGS AFFECTING FOETUS [None]
  - QRS AXIS ABNORMAL [None]
